FAERS Safety Report 6832744-6 (Version None)
Quarter: 2010Q3

REPORT INFORMATION
  Report Type: 
  Country: None (occurrence: None)
  Receive Date: 20100712
  Receipt Date: 20100702
  Transmission Date: 20110219
  Serious: Yes (Other)
  Sender: FDA-Public Use
  Company Number: US-GENENTECH-298505

PATIENT
  Sex: Female
  Weight: 120.18 kg

DRUGS (1)
  1. XOLAIR [Suspect]
     Indication: ASTHMA
     Dosage: 375 MG, Q2W
     Route: 058
     Dates: start: 20100201, end: 20100222

REACTIONS (4)
  - HYPERSENSITIVITY [None]
  - HYPOAESTHESIA ORAL [None]
  - RASH [None]
  - SWOLLEN TONGUE [None]
